FAERS Safety Report 13125988 (Version 1)
Quarter: 2017Q1

REPORT INFORMATION
  Report Type: Spontaneous
  Country: US (occurrence: US)
  Receive Date: 20170118
  Receipt Date: 20170118
  Transmission Date: 20170428
  Serious: Yes (Hospitalization, Other)
  Sender: FDA-Public Use
  Company Number: US-GLAXOSMITHKLINE-US2017005981

PATIENT
  Sex: Female

DRUGS (8)
  1. BAYER LOW DOSE ASPIRIN [Concomitant]
  2. GLUCOSAMINE [Concomitant]
     Active Substance: GLUCOSAMINE
  3. COD LIVER OIL [Concomitant]
     Active Substance: COD LIVER OIL
  4. VITAMIN C [Concomitant]
     Active Substance: ASCORBIC ACID
  5. ADVAIR DISKUS [Suspect]
     Active Substance: FLUTICASONE PROPIONATE\SALMETEROL XINAFOATE
     Indication: ASTHMA
     Dosage: 1 PUFF(S), BID
     Route: 055
     Dates: start: 2007
  6. IBUPROFEN. [Concomitant]
     Active Substance: IBUPROFEN
  7. VENTOLIN HFA [Suspect]
     Active Substance: ALBUTEROL SULFATE
     Indication: COUGH
     Dosage: 1 PUFF(S), PRN
     Route: 055
  8. CALCIUM [Concomitant]
     Active Substance: CALCIUM

REACTIONS (12)
  - Weight increased [Recovering/Resolving]
  - Accidental underdose [Unknown]
  - Hypertension [Recovered/Resolved]
  - Blindness [Unknown]
  - Arthritis [Recovered/Resolved]
  - Osteoarthritis [Unknown]
  - Drug ineffective [Unknown]
  - Device use error [Unknown]
  - Asthma [Recovered/Resolved]
  - Joint injury [Unknown]
  - Weight decreased [Unknown]
  - Product cleaning inadequate [Unknown]

NARRATIVE: CASE EVENT DATE: 2007
